FAERS Safety Report 5418265-6 (Version None)
Quarter: 2007Q3

REPORT INFORMATION
  Report Type: 
  Country: None (occurrence: None)
  Receive Date: 20070817
  Receipt Date: 20070810
  Transmission Date: 20080115
  Serious: Yes (Hospitalization)
  Sender: FDA-Public Use
  Company Number: B0480857A

PATIENT
  Age: 50 Year
  Sex: Female
  Weight: 55 kg

DRUGS (6)
  1. VALTREX [Suspect]
     Indication: HERPES ZOSTER
     Dosage: 1000MG THREE TIMES PER DAY
     Route: 048
     Dates: start: 20070721, end: 20070722
  2. METHYCOBAL [Suspect]
     Indication: HERPES ZOSTER
     Dosage: 500MG THREE TIMES PER DAY
     Route: 048
     Dates: start: 20070721, end: 20070722
  3. CEFOPERAZONE SODIUM [Concomitant]
     Dosage: 2G PER DAY
     Dates: start: 20070723
  4. SULBACTAM SODIUM [Concomitant]
     Dosage: 2G PER DAY
     Dates: start: 20070723
  5. PREDNISOLONE [Concomitant]
  6. CEFCAPENE PIVOXIL HYDROCHLORIDE [Concomitant]
     Dates: start: 20070724

REACTIONS (2)
  - DRUG ERUPTION [None]
  - LYMPH NODE PAIN [None]
